FAERS Safety Report 13562805 (Version 1)
Quarter: 2017Q2

REPORT INFORMATION
  Report Type: Spontaneous
  Country: PL (occurrence: PL)
  Receive Date: 20170519
  Receipt Date: 20170519
  Transmission Date: 20170830
  Serious: Yes (Other)
  Sender: FDA-Public Use
  Company Number: PL-AMGEN-POLSP2017075658

PATIENT
  Age: 66 Year
  Sex: Male
  Weight: 58.5 kg

DRUGS (5)
  1. ENBREL [Suspect]
     Active Substance: ETANERCEPT
     Indication: ANKYLOSING SPONDYLITIS
     Dosage: 50 MG, UNK
     Route: 058
     Dates: start: 201506
  2. TULIP [Concomitant]
     Active Substance: ATORVASTATIN
     Indication: ANKYLOSING SPONDYLITIS
     Dosage: 10 MG, UNK
     Route: 058
     Dates: start: 201510
  3. TULIP [Concomitant]
     Active Substance: ATORVASTATIN
     Indication: LIPID METABOLISM DISORDER
  4. ACARD [Concomitant]
     Active Substance: ASPIRIN
     Indication: ANKYLOSING SPONDYLITIS
     Dosage: 75 MG, UNK
     Route: 058
     Dates: start: 201510
  5. BIOFENAC [Suspect]
     Active Substance: ACECLOFENAC
     Indication: ANKYLOSING SPONDYLITIS
     Dosage: 200 MG, UNK
     Route: 058
     Dates: start: 201505

REACTIONS (1)
  - Atrioventricular block second degree [Recovering/Resolving]

NARRATIVE: CASE EVENT DATE: 20170308
